FAERS Safety Report 9956184 (Version 1)
Quarter: 2014Q1

REPORT INFORMATION
  Report Type: Report from Study
  Country: US (occurrence: US)
  Receive Date: 20140304
  Receipt Date: 20140304
  Transmission Date: 20141002
  Serious: No
  Sender: FDA-Public Use
  Company Number: US-ABBVIE-13P-163-1089541-00

PATIENT
  Sex: Male
  Weight: 95.34 kg

DRUGS (6)
  1. HUMIRA [Suspect]
     Indication: PSORIASIS
     Dates: start: 2010, end: 2010
  2. HUMIRA [Suspect]
     Dosage: STARTED ONE WEEK AFTER 80 MG DOSE
     Dates: start: 2010, end: 2011
  3. HUMIRA [Suspect]
     Dates: start: 201302, end: 201302
  4. HUMIRA [Suspect]
     Dosage: STARTED ONE WEEK AFTER 80 MG DOSE
     Dates: start: 2013
  5. ATORVASTATIN [Concomitant]
     Indication: BLOOD CHOLESTEROL INCREASED
  6. CARVEDILOL [Concomitant]
     Indication: HYPERTENSION

REACTIONS (2)
  - Psoriasis [Not Recovered/Not Resolved]
  - Drug effect incomplete [Not Recovered/Not Resolved]
